FAERS Safety Report 14426138 (Version 1)
Quarter: 2018Q1

REPORT INFORMATION
  Report Type: Spontaneous
  Country: US (occurrence: US)
  Receive Date: 20180122
  Receipt Date: 20180122
  Transmission Date: 20180509
  Serious: Yes (Hospitalization)
  Sender: FDA-Public Use
  Company Number: None

PATIENT
  Sex: Male

DRUGS (7)
  1. GABAPENTIN. [Concomitant]
     Active Substance: GABAPENTIN
  2. SILDENAFIL. [Suspect]
     Active Substance: SILDENAFIL
     Indication: PULMONARY ARTERIAL HYPERTENSION
     Route: 048
     Dates: start: 20130118
  3. POTASSIUM [Concomitant]
     Active Substance: POTASSIUM
  4. PEPCID [Concomitant]
     Active Substance: FAMOTIDINE
  5. CARAFATE [Concomitant]
     Active Substance: SUCRALFATE
  6. LANTUS [Concomitant]
     Active Substance: INSULIN GLARGINE
  7. VITAMIN D3 [Concomitant]
     Active Substance: CHOLECALCIFEROL

REACTIONS (1)
  - Nephrolithiasis [None]
